FAERS Safety Report 9720720 (Version 1)
Quarter: 2013Q4

REPORT INFORMATION
  Report Type: Spontaneous
  Country: KR (occurrence: KR)
  Receive Date: 20131129
  Receipt Date: 20131129
  Transmission Date: 20140711
  Serious: Yes (Hospitalization)
  Sender: FDA-Public Use
  Company Number: PHHY2013KR137132

PATIENT
  Age: 13 Year
  Sex: Male

DRUGS (1)
  1. IMATINIB [Suspect]
     Indication: CHRONIC MYELOID LEUKAEMIA

REACTIONS (6)
  - Hypophagia [Unknown]
  - Blast crisis in myelogenous leukaemia [Recovering/Resolving]
  - Drug resistance [Recovering/Resolving]
  - Diarrhoea [Unknown]
  - Leukocytosis [Recovering/Resolving]
  - Therapeutic response decreased [Unknown]
